FAERS Safety Report 8066350-5 (Version None)
Quarter: 2012Q1

REPORT INFORMATION
  Report Type: 
  Country: None (occurrence: None)
  Receive Date: 20120124
  Receipt Date: 20120116
  Transmission Date: 20120608
  Serious: Yes (Hospitalization, Other)
  Sender: FDA-Public Use
  Company Number: US-BAYER-2011-056360

PATIENT
  Age: 27 Year
  Sex: Female
  Weight: 54.422 kg

DRUGS (9)
  1. PREVACID [Concomitant]
     Dosage: UNK
     Dates: start: 20090417
  2. HYDROCODONE BITARTRATE AND ACETAMINOPHEN [Concomitant]
     Dosage: UNK
     Dates: start: 20090301
  3. LEXAPRO [Concomitant]
     Dosage: UNK
     Dates: start: 20090610
  4. AMOXICILLIN [Concomitant]
     Dosage: 500 MG, UNK
     Dates: start: 20090501
  5. GAS-X [Concomitant]
  6. DROSPIRENONE AND ETHINYL ESTRADIOL [Suspect]
     Indication: PREMENSTRUAL SYNDROME
     Dosage: UNK
     Dates: start: 20070101, end: 20090101
  7. METAMUCIL-2 [Concomitant]
  8. DROSPIRENONE AND ETHINYL ESTRADIOL [Suspect]
  9. PAXIL [Concomitant]
     Dosage: UNK
     Dates: start: 20080610, end: 20090610

REACTIONS (5)
  - PAIN [None]
  - CHOLECYSTITIS CHRONIC [None]
  - GALLBLADDER NON-FUNCTIONING [None]
  - BILIARY DYSKINESIA [None]
  - CHOLELITHIASIS [None]
